FAERS Safety Report 18584212 (Version 1)
Quarter: 2020Q4

REPORT INFORMATION
  Report Type: Report from Study
  Country: US (occurrence: US)
  Receive Date: 20201207
  Receipt Date: 20201207
  Transmission Date: 20210114
  Serious: Yes (Death, Hospitalization)
  Sender: FDA-Public Use
  Company Number: US-ROCHE-2658077

PATIENT
  Age: 80 Year
  Sex: Male

DRUGS (3)
  1. BEVACIZUMAB. [Suspect]
     Active Substance: BEVACIZUMAB
     Indication: METASTATIC MALIGNANT MELANOMA
     Dosage: ON 02/JUN/2020, THE LAST DOSE OF BEVACIZUMAB WAS GIVEN.
     Route: 042
     Dates: start: 20191015, end: 20200602
  2. COBIMETINIB. [Suspect]
     Active Substance: COBIMETINIB
     Indication: METASTATIC MALIGNANT MELANOMA
     Dosage: ON 23/JUN/2020, THE LAST DOSE OF COBIMETINIB WAS GIVEN
     Route: 048
     Dates: start: 20191015, end: 20200623
  3. ATEZOLIZUMAB. [Suspect]
     Active Substance: ATEZOLIZUMAB
     Indication: METASTATIC MALIGNANT MELANOMA
     Dosage: ON 02/JUN/2020, THE LAST DOSE OF ATEZOLIZUMAB WAS ADMINISTERED
     Route: 041
     Dates: start: 20191015, end: 20200602

REACTIONS (6)
  - Aortoenteric fistula [Unknown]
  - Intra-abdominal haematoma [Unknown]
  - Abdominal pain [Unknown]
  - Syncope [Unknown]
  - Arterial rupture [Unknown]
  - Death [Fatal]

NARRATIVE: CASE EVENT DATE: 20201111
